FAERS Safety Report 21799822 (Version 2)
Quarter: 2023Q1

REPORT INFORMATION
  Report Type: Report from Study
  Country: GB (occurrence: GB)
  Receive Date: 20221230
  Receipt Date: 20230103
  Transmission Date: 20230418
  Serious: Yes (Other)
  Sender: FDA-Public Use
  Company Number: GB-JNJFOC-20221256781

PATIENT

DRUGS (36)
  1. REMICADE [Suspect]
     Active Substance: INFLIXIMAB
     Indication: Crohn^s disease
     Route: 041
  2. REMICADE [Suspect]
     Active Substance: INFLIXIMAB
     Indication: Rheumatoid arthritis
  3. REMICADE [Suspect]
     Active Substance: INFLIXIMAB
     Indication: Spondylitis
  4. REMICADE [Suspect]
     Active Substance: INFLIXIMAB
     Indication: Connective tissue disorder
  5. REMICADE [Suspect]
     Active Substance: INFLIXIMAB
     Indication: Vasculitis
  6. REMICADE [Suspect]
     Active Substance: INFLIXIMAB
     Indication: Autoinflammatory disease
  7. REMICADE [Suspect]
     Active Substance: INFLIXIMAB
     Indication: Inflammatory bowel disease
  8. REMICADE [Suspect]
     Active Substance: INFLIXIMAB
     Indication: Psoriasis
  9. REMICADE [Suspect]
     Active Substance: INFLIXIMAB
     Indication: Multiple sclerosis
  10. SIMPONI [Suspect]
     Active Substance: GOLIMUMAB
     Indication: Crohn^s disease
     Route: 058
  11. SIMPONI [Suspect]
     Active Substance: GOLIMUMAB
     Indication: Rheumatoid arthritis
  12. SIMPONI [Suspect]
     Active Substance: GOLIMUMAB
     Indication: Spondylitis
  13. SIMPONI [Suspect]
     Active Substance: GOLIMUMAB
     Indication: Connective tissue disorder
  14. SIMPONI [Suspect]
     Active Substance: GOLIMUMAB
     Indication: Vasculitis
  15. SIMPONI [Suspect]
     Active Substance: GOLIMUMAB
     Indication: Autoinflammatory disease
  16. SIMPONI [Suspect]
     Active Substance: GOLIMUMAB
     Indication: Inflammatory bowel disease
  17. SIMPONI [Suspect]
     Active Substance: GOLIMUMAB
     Indication: Psoriasis
  18. SIMPONI [Suspect]
     Active Substance: GOLIMUMAB
     Indication: Multiple sclerosis
  19. TREMFYA [Suspect]
     Active Substance: GUSELKUMAB
     Indication: Crohn^s disease
     Route: 065
  20. TREMFYA [Suspect]
     Active Substance: GUSELKUMAB
     Indication: Rheumatoid arthritis
  21. TREMFYA [Suspect]
     Active Substance: GUSELKUMAB
     Indication: Spondylitis
  22. TREMFYA [Suspect]
     Active Substance: GUSELKUMAB
     Indication: Connective tissue disorder
  23. TREMFYA [Suspect]
     Active Substance: GUSELKUMAB
     Indication: Vasculitis
  24. TREMFYA [Suspect]
     Active Substance: GUSELKUMAB
     Indication: Autoinflammatory disease
  25. TREMFYA [Suspect]
     Active Substance: GUSELKUMAB
     Indication: Inflammatory bowel disease
  26. TREMFYA [Suspect]
     Active Substance: GUSELKUMAB
     Indication: Psoriasis
  27. TREMFYA [Suspect]
     Active Substance: GUSELKUMAB
     Indication: Multiple sclerosis
  28. STELARA [Suspect]
     Active Substance: USTEKINUMAB
     Indication: Crohn^s disease
     Route: 058
  29. STELARA [Suspect]
     Active Substance: USTEKINUMAB
     Indication: Rheumatoid arthritis
  30. STELARA [Suspect]
     Active Substance: USTEKINUMAB
     Indication: Spondylitis
  31. STELARA [Suspect]
     Active Substance: USTEKINUMAB
     Indication: Connective tissue disorder
  32. STELARA [Suspect]
     Active Substance: USTEKINUMAB
     Indication: Vasculitis
  33. STELARA [Suspect]
     Active Substance: USTEKINUMAB
     Indication: Autoinflammatory disease
  34. STELARA [Suspect]
     Active Substance: USTEKINUMAB
     Indication: Inflammatory bowel disease
  35. STELARA [Suspect]
     Active Substance: USTEKINUMAB
     Indication: Psoriasis
  36. STELARA [Suspect]
     Active Substance: USTEKINUMAB
     Indication: Multiple sclerosis

REACTIONS (27)
  - Meningitis meningococcal [Unknown]
  - Opportunistic infection [Unknown]
  - Pneumocystis jirovecii pneumonia [Unknown]
  - Tuberculosis [Unknown]
  - Salmonellosis [Unknown]
  - Mycobacterial infection [Unknown]
  - Histoplasmosis [Unknown]
  - Blastomycosis [Unknown]
  - Aspergillus infection [Unknown]
  - Cryptococcosis [Unknown]
  - Coccidioidomycosis [Unknown]
  - Cytomegalovirus infection [Unknown]
  - Hepatitis [Unknown]
  - Listeriosis [Unknown]
  - Lower respiratory tract infection [Unknown]
  - Urinary tract infection [Unknown]
  - Sinusitis [Unknown]
  - Upper respiratory tract infection [Unknown]
  - Herpes zoster [Unknown]
  - Herpes simplex [Unknown]
  - Ear infection [Unknown]
  - Influenza [Unknown]
  - Rhinitis [Unknown]
  - Pharyngitis [Unknown]
  - Epstein-Barr virus infection [Unknown]
  - Candida infection [Unknown]
  - Tinea infection [Unknown]
